FAERS Safety Report 7030406-6 (Version None)
Quarter: 2010Q4

REPORT INFORMATION
  Report Type: 
  Country: None (occurrence: None)
  Receive Date: 20101006
  Receipt Date: 20091126
  Transmission Date: 20110411
  Serious: Yes (Other)
  Sender: FDA-Public Use
  Company Number: ES-SANOFI-AVENTIS-F01200900585

PATIENT
  Age: 80 Year
  Sex: Male

DRUGS (4)
  1. LEUPROLIDE ACETATE [Suspect]
     Indication: PROSTATE CANCER
     Route: 058
     Dates: start: 20090130, end: 20090130
  2. BICALUTAMIDE [Suspect]
     Indication: PROSTATE CANCER
     Route: 048
     Dates: start: 20090130, end: 20090228
  3. ATORVASTATIN CALCIUM [Concomitant]
     Route: 048
     Dates: start: 20000101
  4. SALBUTAMOL [Concomitant]
     Dates: start: 20000101

REACTIONS (1)
  - THROMBOCYTOPENIA [None]
